FAERS Safety Report 17432995 (Version 2)
Quarter: 2020Q3

REPORT INFORMATION
  Report Type: Report from Study
  Country: None (occurrence: CA)
  Receive Date: 20200219
  Receipt Date: 20200919
  Transmission Date: 20201102
  Serious: Yes (Hospitalization, Other)
  Sender: FDA-Public Use
  Company Number: CA-ABBVIE-20K-028-3281647-00

PATIENT
  Age: 71 Year
  Sex: Male

DRUGS (1)
  1. HUMIRA [Suspect]
     Active Substance: ADALIMUMAB
     Indication: ANKYLOSING SPONDYLITIS
     Route: 058
     Dates: start: 20120328

REACTIONS (9)
  - Fall [Recovered/Resolved]
  - Head injury [Recovered/Resolved]
  - Postoperative wound complication [Recovered/Resolved]
  - Lumbar vertebral fracture [Recovered/Resolved]
  - Bacteraemia [Recovered/Resolved]
  - Arthralgia [Not Recovered/Not Resolved]
  - Post procedural sepsis [Recovered/Resolved]
  - Fall [Recovered/Resolved]
  - Back pain [Not Recovered/Not Resolved]

NARRATIVE: CASE EVENT DATE: 2019
